FAERS Safety Report 11063436 (Version 1)
Quarter: 2015Q2

REPORT INFORMATION
  Report Type: Spontaneous
  Country: US (occurrence: US)
  Receive Date: 20150424
  Receipt Date: 20150424
  Transmission Date: 20150821
  Serious: No
  Sender: FDA-Public Use
  Company Number: US-ALKERMES INC.-ALK-2014-003660

PATIENT

DRUGS (2)
  1. OXYCONTIN [Concomitant]
     Active Substance: OXYCODONE HYDROCHLORIDE
     Indication: TOOTHACHE
     Dosage: UNK
     Dates: start: 20141001, end: 20141001
  2. VIVITROL [Suspect]
     Active Substance: NALTREXONE
     Indication: ALCOHOLISM
     Dosage: 380 MG, UNK
     Route: 030
     Dates: start: 20141001, end: 20141001

REACTIONS (10)
  - Tremor [Recovering/Resolving]
  - Cold sweat [Recovering/Resolving]
  - Paraesthesia [Recovering/Resolving]
  - Drug administration error [Recovered/Resolved]
  - Chest pain [Recovering/Resolving]
  - Chills [Recovering/Resolving]
  - Vomiting [Recovering/Resolving]
  - Abdominal discomfort [Recovering/Resolving]
  - Asthenia [Recovering/Resolving]
  - Diarrhoea [Recovering/Resolving]

NARRATIVE: CASE EVENT DATE: 20141001
